FAERS Safety Report 11415461 (Version 2)
Quarter: 2015Q3

REPORT INFORMATION
  Report Type: Spontaneous
  Country: US (occurrence: US)
  Receive Date: 20150825
  Receipt Date: 20150901
  Transmission Date: 20151125
  Serious: Yes (Hospitalization)
  Sender: FDA-Public Use
  Company Number: US-BEH-2015053242

PATIENT
  Sex: Female
  Weight: 28 kg

DRUGS (13)
  1. SULFAMETHOXAZOLE [Concomitant]
     Active Substance: SULFAMETHOXAZOLE
     Route: 048
  2. DIPHENHYDRAMINE. [Concomitant]
     Active Substance: DIPHENHYDRAMINE
     Dosage: AS DIRECTED
     Route: 048
  3. LMX [Concomitant]
     Active Substance: LIDOCAINE
     Dosage: 4%
     Route: 061
  4. FLOVENT [Concomitant]
     Active Substance: FLUTICASONE PROPIONATE
     Route: 055
  5. HEPARIN [Concomitant]
     Active Substance: HEPARIN SODIUM
     Dosage: FLUSH AS DIRECTED
     Route: 042
  6. LIDOCAINE/PRILOCAINE [Concomitant]
  7. ACETAMINOPHEN. [Concomitant]
     Active Substance: ACETAMINOPHEN
     Dosage: AS DIRECTED
     Route: 048
  8. PRIVIGEN [Suspect]
     Active Substance: HUMAN IMMUNOGLOBULIN G
     Indication: SPINOCEREBELLAR DISORDER
     Route: 042
  9. EPIPEN [Concomitant]
     Active Substance: EPINEPHRINE
     Indication: ANAPHYLACTIC REACTION
     Dosage: 0.15 MG AS DIRECTED
     Route: 030
  10. SODIUM CHLORIDE. [Concomitant]
     Active Substance: SODIUM CHLORIDE
     Dosage: 0.9% AS DIRECTED
     Route: 042
  11. RANITIDINE [Concomitant]
     Active Substance: RANITIDINE\RANITIDINE HYDROCHLORIDE
     Dosage: VIA G TUBE
  12. ALBUTEROL. [Concomitant]
     Active Substance: ALBUTEROL
     Dosage: ONE NEBULIZER INHALATION
  13. LIDOCAINE PRILOCAINE [Concomitant]
     Dosage: 2.5%
     Route: 061

REACTIONS (1)
  - Pneumonia [Not Recovered/Not Resolved]
